FAERS Safety Report 16149678 (Version 1)
Quarter: 2019Q2

REPORT INFORMATION
  Report Type: Spontaneous
  Country: IT (occurrence: IT)
  Receive Date: 20190402
  Receipt Date: 20190402
  Transmission Date: 20190711
  Serious: Yes (Life-Threatening)
  Sender: FDA-Public Use
  Company Number: IT-MYLANLABS-2019M1028458

PATIENT
  Age: 59 Year
  Sex: Male

DRUGS (5)
  1. SINTROM [Concomitant]
     Active Substance: ACENOCOUMAROL
     Dosage: UNK
  2. VANCOMYCIN [Suspect]
     Active Substance: VANCOMYCIN
     Indication: PRODUCT USED FOR UNKNOWN INDICATION
     Dosage: UNK
     Route: 042
     Dates: start: 20080402, end: 20080402
  3. PREFOLIC [Concomitant]
     Active Substance: LEUCOVORIN CALCIUM
     Dosage: UNK
  4. CALCIO CARBONATO [Concomitant]
     Dosage: UNK
  5. EPOETINA ALFA [Concomitant]
     Dosage: UNK

REACTIONS (4)
  - Dyspnoea [Recovered/Resolved]
  - Hypersensitivity [Recovered/Resolved]
  - Laryngeal oedema [Recovered/Resolved]
  - Loss of consciousness [Recovered/Resolved]

NARRATIVE: CASE EVENT DATE: 20080402
